FAERS Safety Report 8799773 (Version 1)
Quarter: 2012Q4

REPORT INFORMATION
  Report Type: Spontaneous
  Country: US (occurrence: None)
  Receive Date: 20120917
  Receipt Date: 20120917
  Transmission Date: 20130627
  Serious: Yes (Hospitalization)
  Sender: FDA-Public Use
  Company Number: UTC-022696

PATIENT
  Age: 62 Year
  Sex: Male
  Weight: 115.2 kg

DRUGS (4)
  1. TYVASO (6 MICROGRAM, AEROSOL FOR INHALATION) (TREPROSTINIL SODIUM) [Suspect]
     Indication: PRIMARY PULMONARY HYPERTENSION
     Dosage: 18-54 micrograms (4 in 1 D), Inhalation
     Dates: start: 20120619, end: 201208
  2. COUMADIN (WARFARIN SODIUM) [Concomitant]
  3. ASPIRIN (ACETYLSALICYLIC ACID) [Concomitant]
  4. NITROGLYCERIN (GLYCERYL TRINITRATE) [Concomitant]

REACTIONS (3)
  - Dyspnoea [None]
  - Cardiac failure [None]
  - Hypotension [None]
